FAERS Safety Report 15067270 (Version 1)
Quarter: 2018Q2

REPORT INFORMATION
  Report Type: Spontaneous
  Country: US (occurrence: US)
  Receive Date: 20180606
  Receipt Date: 20180606
  Transmission Date: 20180711
  Serious: Yes (Death)
  Sender: FDA-Public Use
  Company Number: None

PATIENT
  Age: 62 Year
  Sex: Male

DRUGS (2)
  1. TEMOZOLOMIDE 140MG SANDOZ [Suspect]
     Active Substance: TEMOZOLOMIDE
     Indication: PROSTATE CANCER
     Route: 048
     Dates: start: 20180420, end: 20180527
  2. TEMOZOLOMIDE. [Suspect]
     Active Substance: TEMOZOLOMIDE
     Indication: PROSTATE CANCER
     Route: 048
     Dates: start: 20180420, end: 20180527

REACTIONS (1)
  - Death [None]

NARRATIVE: CASE EVENT DATE: 20180527
